FAERS Safety Report 6876202-1 (Version None)
Quarter: 2010Q3

REPORT INFORMATION
  Report Type: 
  Country: None (occurrence: None)
  Receive Date: 20100727
  Receipt Date: 20100709
  Transmission Date: 20110219
  Serious: Yes (Hospitalization)
  Sender: FDA-Public Use
  Company Number: A0866829A

PATIENT
  Age: 61 Year
  Sex: Female

DRUGS (10)
  1. AVANDIA [Suspect]
     Dosage: 4MG TWICE PER DAY
     Dates: start: 20020101, end: 20080212
  2. HYDROCODONE BITARTRATE [Concomitant]
  3. METHOCARBAMOL [Concomitant]
  4. RANITIDINE [Concomitant]
  5. LISINOPRIL [Concomitant]
  6. MIRTAZAPINE [Concomitant]
  7. NAPROXEN [Concomitant]
     Dosage: 375MG PER DAY
  8. OMEPRAZOLE [Concomitant]
  9. CARBAMAZEPINE [Concomitant]
  10. QUININE [Concomitant]

REACTIONS (1)
  - MYOCARDIAL INFARCTION [None]
